FAERS Safety Report 9392419 (Version 2)
Quarter: 2013Q3

REPORT INFORMATION
  Report Type: Spontaneous
  Country: US (occurrence: US)
  Receive Date: 20130710
  Receipt Date: 20130807
  Transmission Date: 20140515
  Serious: Yes (Hospitalization)
  Sender: FDA-Public Use
  Company Number: US-BIOGENIDEC-2008BI011004

PATIENT
  Age: 61 Year
  Sex: Female

DRUGS (2)
  1. AVONEX [Suspect]
     Indication: MULTIPLE SCLEROSIS
     Route: 030
  2. AVONEX [Suspect]
     Indication: MULTIPLE SCLEROSIS
     Route: 030
     Dates: start: 19990419

REACTIONS (10)
  - Post procedural complication [Recovered/Resolved]
  - Mitral valve incompetence [Recovered/Resolved]
  - Cardiac murmur [Recovered/Resolved]
  - Aortic valve incompetence [Recovered/Resolved]
  - Cardiac failure congestive [Recovered/Resolved]
  - Mobility decreased [Recovered/Resolved]
  - Multiple sclerosis [Unknown]
  - Memory impairment [Not Recovered/Not Resolved]
  - Neck pain [Unknown]
  - Fatigue [Recovered/Resolved]
